FAERS Safety Report 8134980-8 (Version None)
Quarter: 2012Q1

REPORT INFORMATION
  Report Type: 
  Country: None (occurrence: None)
  Receive Date: 20120214
  Receipt Date: 20120210
  Transmission Date: 20120608
  Serious: Yes (Hospitalization, Other)
  Sender: FDA-Public Use
  Company Number: GB-AMGEN-GBRSP2012003860

PATIENT
  Age: 82 Year
  Sex: Male
  Weight: 77 kg

DRUGS (6)
  1. TRAMADOL HCL [Concomitant]
     Dosage: 50 MG, PRN
     Route: 048
  2. NPLATE [Suspect]
     Indication: IDIOPATHIC THROMBOCYTOPENIC PURPURA
     Dosage: 7 MUG/KG, QWK
     Route: 058
     Dates: start: 20110819
  3. VALSARTAN [Concomitant]
     Dosage: 160 MG, UNK
     Route: 048
  4. OMEPRAZOLE [Concomitant]
     Dosage: 40 MG, UNK
     Route: 048
  5. DILTIAZEM HCL [Concomitant]
     Dosage: 300 MG, UNK
     Route: 048
  6. FUROSEMIDE [Concomitant]
     Dosage: 40 MG, UNK
     Route: 048

REACTIONS (3)
  - ACUTE MYOCARDIAL INFARCTION [None]
  - RECTAL HAEMORRHAGE [None]
  - PLATELET COUNT ABNORMAL [None]
